FAERS Safety Report 16121651 (Version 1)
Quarter: 2019Q1

REPORT INFORMATION
  Report Type: Report from Study
  Country: IN (occurrence: IN)
  Receive Date: 20190327
  Receipt Date: 20190327
  Transmission Date: 20190418
  Serious: Yes (Hospitalization)
  Sender: FDA-Public Use
  Company Number: IN-ALEMBIC PHARMACUETICALS LIMITED-2019SCAL000177

PATIENT

DRUGS (2)
  1. DESVENLAFAXINE. [Suspect]
     Active Substance: DESVENLAFAXINE
     Indication: PRODUCT USED FOR UNKNOWN INDICATION
     Dosage: 50 MILLIGRAM, OD
     Route: 048
     Dates: start: 20190228, end: 20190228
  2. DESVENLAFAXINE. [Suspect]
     Active Substance: DESVENLAFAXINE
     Dosage: 50 MILLIGRAM, OD
     Route: 048
     Dates: start: 20190308, end: 20190308

REACTIONS (4)
  - Vomiting [Recovered/Resolved]
  - Asthenia [Recovered/Resolved]
  - Hepatitis A [Recovered/Resolved]
  - Abdominal pain [Recovered/Resolved]

NARRATIVE: CASE EVENT DATE: 20190311
